FAERS Safety Report 5531565-4 (Version None)
Quarter: 2007Q4

REPORT INFORMATION
  Report Type: 
  Country: None (occurrence: None)
  Receive Date: 20071121
  Receipt Date: 20071121
  Transmission Date: 20080405
  Serious: Yes (Death, Hospitalization, Other)
  Sender: FDA-Public Use
  Company Number: None

PATIENT
  Age: 84 Year
  Sex: Male
  Weight: 48.9 kg

DRUGS (23)
  1. MITOXANTRONE [Suspect]
     Indication: PROSTATE CANCER
     Dosage: 12 MG/M2 Q3W - INTRAVENOUS NOS
     Route: 042
     Dates: start: 20071011, end: 20071011
  2. PREDNISONE [Suspect]
     Dosage: 10 MG QD - ORAL
     Route: 048
     Dates: start: 20071011, end: 20071024
  3. GLYCERYL TRINITRATE [Concomitant]
  4. OXYCODONE HCL [Concomitant]
  5. TEMAZEPAM [Concomitant]
  6. TRIAMTERENE [Concomitant]
  7. METOPROLOL [Concomitant]
  8. DOCUSATE SODIUM [Concomitant]
  9. MEGESTROL [Concomitant]
  10. MACROGOL [Concomitant]
  11. OMEPRAZOLE [Concomitant]
  12. BRIMONIDINE TARTRATE [Concomitant]
  13. ACETYLSALICYLIC ACID SRT [Concomitant]
  14. PROCHLORPERAZINE EDISYLATE [Concomitant]
  15. COSOFT [Concomitant]
  16. BIMATOPROST [Concomitant]
  17. ALPRAZOLAM [Concomitant]
  18. PREDNISONE TAB [Concomitant]
  19. METOCLOPRAMIDE [Concomitant]
  20. IOVERSOL [Concomitant]
  21. DARBEPOETIN ALFA [Concomitant]
  22. NEUPOGEN [Concomitant]
  23. PAMIDRONATE DISODIUM [Concomitant]

REACTIONS (12)
  - AGITATION [None]
  - CONFUSIONAL STATE [None]
  - DELUSION [None]
  - DEMENTIA [None]
  - HALLUCINATION [None]
  - INFECTION [None]
  - INSOMNIA [None]
  - MALIGNANT NEOPLASM PROGRESSION [None]
  - MENINGITIS [None]
  - PSYCHOTIC DISORDER [None]
  - SCREAMING [None]
  - SLEEP DISORDER [None]
